FAERS Safety Report 13461104 (Version 7)
Quarter: 2017Q4

REPORT INFORMATION
  Report Type: Spontaneous
  Country: US (occurrence: US)
  Receive Date: 20170420
  Receipt Date: 20171129
  Transmission Date: 20180320
  Serious: Yes (Congenital Anomaly, Other)
  Sender: FDA-Public Use
  Company Number: PHEH2017US011407

PATIENT
  Sex: Male

DRUGS (1)
  1. ZOFRAN [Suspect]
     Active Substance: ONDANSETRON HYDROCHLORIDE
     Indication: FOETAL EXPOSURE DURING PREGNANCY
     Dosage: MOTHER DOSE: 1 DF, Q6H
     Route: 064

REACTIONS (36)
  - Respiratory distress [Unknown]
  - Upper respiratory tract infection [Unknown]
  - Acute sinusitis [Unknown]
  - Dysarthria [Unknown]
  - Viral infection [Unknown]
  - Otitis media chronic [Unknown]
  - Language disorder [Unknown]
  - Dysuria [Unknown]
  - Pharyngitis [Unknown]
  - Developmental delay [Unknown]
  - Hypotonia [Unknown]
  - Ear pain [Unknown]
  - Otitis media [Unknown]
  - Dyspnoea [Unknown]
  - Attention deficit/hyperactivity disorder [Unknown]
  - Feeding disorder [Unknown]
  - Talipes [Unknown]
  - Autism spectrum disorder [Unknown]
  - Transient tachypnoea of the newborn [Unknown]
  - Palmoplantar keratoderma [Unknown]
  - Pyrexia [Unknown]
  - Deafness [Unknown]
  - Foetal exposure during pregnancy [Unknown]
  - Drooling [Unknown]
  - Faecaloma [Unknown]
  - Otitis media acute [Unknown]
  - Abdominal pain [Unknown]
  - Adenoidal hypertrophy [Unknown]
  - Dyspraxia [Unknown]
  - Constipation [Unknown]
  - Gross motor delay [Unknown]
  - Premature baby [Unknown]
  - Skin abrasion [Unknown]
  - Gastroenteritis [Unknown]
  - Diarrhoea [Unknown]
  - Abdominal distension [Unknown]

NARRATIVE: CASE EVENT DATE: 20030520
